FAERS Safety Report 4753867-1 (Version None)
Quarter: 2005Q3

REPORT INFORMATION
  Report Type: 
  Country: None (occurrence: None)
  Receive Date: 20050826
  Receipt Date: 20050818
  Transmission Date: 20060218
  Serious: Yes (Hospitalization)
  Sender: FDA-Public Use
  Company Number: FR-GLAXOSMITHKLINE-B0391379A

PATIENT
  Age: 83 Year
  Sex: Male

DRUGS (13)
  1. AUGMENTIN '125' [Suspect]
     Dosage: 2G PER DAY
     Route: 048
     Dates: end: 20050419
  2. FUROSEMIDE [Suspect]
     Indication: RENAL FAILURE CHRONIC
     Dosage: 60MG PER DAY
     Route: 048
     Dates: start: 20050325, end: 20050419
  3. LERCAN [Suspect]
     Indication: ESSENTIAL HYPERTENSION
     Dosage: 1UNIT PER DAY
     Route: 048
     Dates: end: 20050419
  4. PERFALGAN [Concomitant]
     Dosage: 1G THREE TIMES PER DAY
     Route: 042
     Dates: end: 20050419
  5. DIFFU K [Concomitant]
     Route: 065
     Dates: end: 20050419
  6. PREVISCAN [Concomitant]
     Dosage: 5MG PER DAY
     Route: 048
     Dates: end: 20050419
  7. FLECAINIDE ACETATE [Concomitant]
     Dosage: 50MG TWICE PER DAY
     Route: 048
     Dates: start: 20050325, end: 20050419
  8. MIXTARD HUMAN 70/30 [Concomitant]
     Route: 065
  9. NITROGLYCERIN [Concomitant]
     Route: 065
     Dates: end: 20050419
  10. BRICANYL [Concomitant]
     Route: 055
     Dates: end: 20050419
  11. ATROVENT [Concomitant]
     Route: 055
     Dates: end: 20050419
  12. BIONOLYTE [Concomitant]
     Dates: end: 20050419
  13. OXYGEN THERAPY [Concomitant]
     Route: 055

REACTIONS (3)
  - DEHYDRATION [None]
  - PYREXIA [None]
  - RENAL FAILURE ACUTE [None]
